FAERS Safety Report 5161627-5 (Version None)
Quarter: 2006Q4

REPORT INFORMATION
  Report Type: 
  Country: None (occurrence: None)
  Receive Date: 20061121
  Receipt Date: 20061113
  Transmission Date: 20070319
  Serious: No
  Sender: FDA-Public Use
  Company Number: E3810-00406-SPO-AU

PATIENT
  Age: 58 Year
  Sex: Male

DRUGS (3)
  1. RABEPRAZOLE SODIUM [Suspect]
     Dosage: ORAL/APPROXIMATELY 5 YEARS AGO
     Route: 048
  2. NEXIUM [Suspect]
  3. OMEPRAZOLE [Concomitant]

REACTIONS (1)
  - GASTRIC POLYPS [None]
